FAERS Safety Report 18170969 (Version 1)
Quarter: 2020Q3

REPORT INFORMATION
  Report Type: Spontaneous
  Country: US (occurrence: US)
  Receive Date: 20200819
  Receipt Date: 20200819
  Transmission Date: 20201103
  Serious: Yes (Hospitalization, Other)
  Sender: FDA-Public Use
  Company Number: US-OTSUKA-2020_019831

PATIENT
  Sex: Female

DRUGS (2)
  1. ABILIFY [Suspect]
     Active Substance: ARIPIPRAZOLE
     Indication: PRODUCT USED FOR UNKNOWN INDICATION
     Dosage: UNK
     Route: 065
  2. TUKYSA [Interacting]
     Active Substance: TUCATINIB
     Indication: BREAST CANCER FEMALE
     Dosage: UNK
     Route: 065

REACTIONS (7)
  - Streptococcal infection [Unknown]
  - Labelled drug-drug interaction medication error [Unknown]
  - Pneumonia [Unknown]
  - Infection [Unknown]
  - Diarrhoea [Unknown]
  - Malaise [Recovering/Resolving]
  - Vomiting [Recovering/Resolving]
